FAERS Safety Report 5616298-8 (Version None)
Quarter: 2008Q1

REPORT INFORMATION
  Report Type: 
  Country: None (occurrence: None)
  Receive Date: 20080204
  Receipt Date: 20080125
  Transmission Date: 20080703
  Serious: Yes (Life-Threatening, Hospitalization)
  Sender: FDA-Public Use
  Company Number: 2008SP000949

PATIENT
  Age: 52 Year
  Sex: Male

DRUGS (8)
  1. PEG-INTRON [Suspect]
     Indication: HEPATITIS C
     Dosage: 150 MCG;QW;SC
     Route: 058
     Dates: start: 20070328, end: 20080101
  2. REBETOL [Suspect]
     Indication: HEPATITIS C
     Dosage: 600 MG;BID;PO
     Route: 048
     Dates: start: 20070328, end: 20080101
  3. HYDROCHLOROTHIAZIDE [Concomitant]
  4. ATENOLOL [Concomitant]
  5. NAPROXEN [Concomitant]
  6. CMAPHOR W/MENTHOL [Concomitant]
  7. HYDROPHILIC [Concomitant]
  8. CYMBALTA [Suspect]
     Indication: DEPRESSION
     Dates: start: 20070425

REACTIONS (5)
  - FAMILIAL RISK FACTOR [None]
  - IMPRISONMENT [None]
  - LOSS OF CONSCIOUSNESS [None]
  - PHYSICAL ASSAULT [None]
  - SUICIDE ATTEMPT [None]
